FAERS Safety Report 13358211 (Version 1)
Quarter: 2017Q1

REPORT INFORMATION
  Report Type: Spontaneous
  Country: US (occurrence: US)
  Receive Date: 20170322
  Receipt Date: 20170322
  Transmission Date: 20170429
  Serious: No
  Sender: FDA-Public Use
  Company Number: US-DEPOMED, INC.-US-2016DEP012126

PATIENT

DRUGS (7)
  1. AMERGE [Concomitant]
     Active Substance: NARATRIPTAN HYDROCHLORIDE
     Indication: NECK PAIN
  2. FIORICET [Concomitant]
     Active Substance: ACETAMINOPHEN\BUTALBITAL\CAFFEINE
     Indication: MIGRAINE
     Dosage: 50/ 325/ 40, UNK
     Route: 048
     Dates: start: 20110105
  3. SUMAVEL DOSEPRO [Concomitant]
     Active Substance: SUMATRIPTAN SUCCINATE
     Indication: MIGRAINE
     Dosage: 6 MG/ 0.5 ML, UNK
     Route: 058
     Dates: start: 20120111
  4. ZANAFLEX [Concomitant]
     Active Substance: TIZANIDINE HYDROCHLORIDE
     Indication: MIGRAINE
     Dosage: 4 MG, BID
     Route: 048
     Dates: start: 20140328
  5. AMERGE [Concomitant]
     Active Substance: NARATRIPTAN HYDROCHLORIDE
     Indication: MIGRAINE
     Dosage: 2.5 MG, UNK
     Route: 048
     Dates: start: 20120620
  6. GRALISE [Suspect]
     Active Substance: GABAPENTIN
     Indication: MIGRAINE
     Dosage: 1800 MG, QD, WITH EVENING MEAL
     Route: 048
     Dates: start: 20160202
  7. ZANAFLEX [Concomitant]
     Active Substance: TIZANIDINE HYDROCHLORIDE
     Indication: NECK PAIN

REACTIONS (2)
  - Weight increased [Unknown]
  - Product use issue [Not Recovered/Not Resolved]

NARRATIVE: CASE EVENT DATE: 20160202
